FAERS Safety Report 15408716 (Version 1)
Quarter: 2018Q3

REPORT INFORMATION
  Report Type: Spontaneous
  Country: US (occurrence: US)
  Receive Date: 20180920
  Receipt Date: 20180920
  Transmission Date: 20181010
  Serious: Yes (Other)
  Sender: FDA-Public Use
  Company Number: US-GLAXOSMITHKLINE-US2018167993

PATIENT

DRUGS (1)
  1. PARODONTAX [Suspect]
     Active Substance: STANNOUS FLUORIDE
     Indication: GINGIVAL BLEEDING
     Dosage: UNK

REACTIONS (4)
  - Herpes zoster oticus [Unknown]
  - Ophthalmic herpes zoster [Unknown]
  - Herpes zoster [Unknown]
  - Drug effect incomplete [Unknown]
